FAERS Safety Report 5308932-7 (Version None)
Quarter: 2007Q2

REPORT INFORMATION
  Report Type: 
  Country: None (occurrence: None)
  Receive Date: 20070426
  Receipt Date: 20070417
  Transmission Date: 20071010
  Serious: Yes (Other)
  Sender: FDA-Public Use
  Company Number: US-PFIZER INC-2007014214

PATIENT
  Age: 48 Year
  Sex: Male
  Weight: 81.6 kg

DRUGS (3)
  1. CHANTIX [Suspect]
     Indication: SMOKING CESSATION THERAPY
     Dates: start: 20070203, end: 20070215
  2. EFFEXOR [Concomitant]
  3. LIPITOR [Concomitant]

REACTIONS (4)
  - DYSPNOEA [None]
  - RASH [None]
  - THROAT TIGHTNESS [None]
  - VOMITING [None]
